FAERS Safety Report 9743962 (Version 1)
Quarter: 2013Q4

REPORT INFORMATION
  Report Type: Spontaneous
  Country: US (occurrence: US)
  Receive Date: 20131210
  Receipt Date: 20131210
  Transmission Date: 20140711
  Serious: No
  Sender: FDA-Public Use
  Company Number: US-BIOGENIDEC-2013BI097991

PATIENT
  Age: 46 Year
  Sex: Female
  Weight: 79 kg

DRUGS (5)
  1. TECFIDERA [Suspect]
     Indication: PRODUCT USED FOR UNKNOWN INDICATION
     Route: 048
  2. AMPYRA [Concomitant]
  3. PREDNISONE [Concomitant]
  4. TIZANIDINE [Concomitant]
  5. OXYBUTYNIN [Concomitant]

REACTIONS (5)
  - Abasia [Recovered/Resolved]
  - Nausea [Recovered/Resolved]
  - Erythema [Recovered/Resolved]
  - Vomiting [Recovered/Resolved]
  - Multiple sclerosis relapse [Recovered/Resolved]
